FAERS Safety Report 19264365 (Version 1)
Quarter: 2021Q2

REPORT INFORMATION
  Report Type: Spontaneous
  Country: US (occurrence: US)
  Receive Date: 20210516
  Receipt Date: 20210516
  Transmission Date: 20210717
  Serious: No
  Sender: FDA-Public Use
  Company Number: None

PATIENT
  Sex: Female

DRUGS (1)
  1. HUMIRA [Suspect]
     Active Substance: ADALIMUMAB
     Indication: JUVENILE IDIOPATHIC ARTHRITIS
     Dosage: OTHER FREQUENCY:EVERY 7 DAYS ;?
     Route: 058
     Dates: start: 201812

REACTIONS (5)
  - Joint swelling [None]
  - Fatigue [None]
  - Arthralgia [None]
  - Inflammation [None]
  - Therapeutic product effect incomplete [None]
